FAERS Safety Report 9248467 (Version 2)
Quarter: 2013Q2

REPORT INFORMATION
  Report Type: Spontaneous
  Country: US (occurrence: US)
  Receive Date: 20130423
  Receipt Date: 20130515
  Transmission Date: 20140414
  Serious: No
  Sender: FDA-Public Use
  Company Number: US-B.I. PHARMACEUTICALS,INC./RIDGEFIELD-2013-BI-10160PF

PATIENT
  Sex: Female

DRUGS (20)
  1. SPIRIVA [Suspect]
     Dosage: 18 MCG
  2. ACCU CHEK [Concomitant]
  3. ACCUPRIL [Concomitant]
     Dosage: 10 MG
     Route: 048
  4. ACIPHEX [Concomitant]
     Dosage: 20 MG
     Route: 048
  5. ARTHROTEC [Concomitant]
     Route: 048
  6. ECOTRIN [Concomitant]
     Dosage: 81 MG
     Route: 048
  7. CHANTIX [Concomitant]
     Dosage: 2 MG
     Route: 048
  8. CELEXA [Concomitant]
     Dosage: 40 MG
     Route: 048
  9. FLEXERIL [Concomitant]
     Indication: MUSCLE SPASMS
     Dosage: 30 MG
     Route: 048
  10. DULERA [Concomitant]
     Route: 055
  11. GLUCOTOROL XL [Concomitant]
     Dosage: 5 MG
     Route: 048
  12. LORTAB [Concomitant]
     Indication: PAIN
     Route: 048
  13. INSULIN DETEMIR [Concomitant]
  14. JANUMET [Concomitant]
     Route: 048
  15. LIPITOR [Concomitant]
     Dosage: 10 MG
     Route: 048
  16. NEURONTIN [Concomitant]
     Dosage: 900 MG
     Route: 048
  17. PROVENTIL [Concomitant]
     Indication: WHEEZING
     Dosage: 720 MCG
     Route: 055
  18. RISPERDAL [Concomitant]
     Dosage: 2 MG
     Route: 048
  19. TRICOR [Concomitant]
     Dosage: 145 MG
     Route: 048
  20. VITAMIN B-12 [Concomitant]
     Dosage: 285.7143 MCG
     Route: 048

REACTIONS (20)
  - Hepatic steatosis [Unknown]
  - Blood cholesterol increased [Unknown]
  - Vitamin B12 deficiency [Unknown]
  - Gastrooesophageal reflux disease [Unknown]
  - Abdominal pain [Unknown]
  - Essential hypertension [Unknown]
  - Arthralgia [Unknown]
  - Bipolar I disorder [Unknown]
  - Insomnia [Unknown]
  - Arthralgia [Unknown]
  - Arthralgia [Unknown]
  - Neck pain [Unknown]
  - Back pain [Unknown]
  - Pain in extremity [Unknown]
  - Depression [Unknown]
  - Chronic obstructive pulmonary disease [Unknown]
  - Vitamin D deficiency [Unknown]
  - Vertebral foraminal stenosis [Unknown]
  - Pain [Unknown]
  - Humerus fracture [Unknown]
